FAERS Safety Report 18570747 (Version 2)
Quarter: 2025Q2

REPORT INFORMATION
  Report Type: Spontaneous
  Country: GB (occurrence: GB)
  Receive Date: 20201202
  Receipt Date: 20250505
  Transmission Date: 20250716
  Serious: Yes (Life-Threatening, Other)
  Sender: TEVA
  Company Number: None

PATIENT
  Age: 49 Year
  Sex: Female
  Weight: 180.5 kg

DRUGS (3)
  1. LOSARTAN POTASSIUM [Suspect]
     Active Substance: LOSARTAN POTASSIUM
     Route: 048
     Dates: start: 20200928, end: 20201015
  2. FELODIPINE [Suspect]
     Active Substance: FELODIPINE
     Route: 048
     Dates: start: 20200923, end: 20200925
  3. DOXAZOSIN MESYLATE [Suspect]
     Active Substance: DOXAZOSIN MESYLATE
     Route: 048
     Dates: start: 20200913, end: 20200921

REACTIONS (3)
  - Arthralgia [Not Recovered/Not Resolved]
  - Dizziness [Not Recovered/Not Resolved]
  - Hypoglycaemia [Not Recovered/Not Resolved]

NARRATIVE: CASE EVENT DATE: 20200915
